FAERS Safety Report 7296221-3 (Version None)
Quarter: 2011Q1

REPORT INFORMATION
  Report Type: 
  Country: None (occurrence: None)
  Receive Date: 20110216
  Receipt Date: 20110209
  Transmission Date: 20110831
  Serious: Yes (Other)
  Sender: FDA-Public Use
  Company Number: IT-JNJFOC-20110204003

PATIENT
  Age: 50 Year
  Sex: Female

DRUGS (4)
  1. HALDOL [Suspect]
     Indication: ILL-DEFINED DISORDER
     Route: 048
  2. VALIUM [Suspect]
     Indication: ILL-DEFINED DISORDER
     Dosage: STRENGTH 0.5%
     Route: 048
  3. FLUNOX [Suspect]
     Indication: ILL-DEFINED DISORDER
     Route: 048
  4. ABILIFY [Suspect]
     Indication: ILL-DEFINED DISORDER
     Route: 048

REACTIONS (3)
  - SELF INJURIOUS BEHAVIOUR [None]
  - INTENTIONAL OVERDOSE [None]
  - SOPOR [None]
